FAERS Safety Report 8914990 (Version 1)
Quarter: 2012Q4

REPORT INFORMATION
  Report Type: 
  Country: US (occurrence: US)
  Receive Date: 20121119
  Receipt Date: 20121119
  Transmission Date: 20130627
  Serious: No
  Sender: FDA-Public Use
  Company Number: US-BAYER-2012-120860

PATIENT

DRUGS (4)
  1. ALEVE CAPLET/TABLET,MIDOL EXTENDED RELIEF CAPLET [Suspect]
     Indication: SCIATICA
  2. TYLENOL [Concomitant]
     Dosage: UNK
  3. BENGAT [Concomitant]
     Dosage: UNK
  4. BENGAY [Concomitant]

REACTIONS (1)
  - Drug ineffective [None]
